FAERS Safety Report 10369624 (Version 1)
Quarter: 2014Q3

REPORT INFORMATION
  Report Type: Spontaneous
  Country: US (occurrence: US)
  Receive Date: 20140807
  Receipt Date: 20140807
  Transmission Date: 20150326
  Serious: No
  Sender: FDA-Public Use
  Company Number: US-AMGEN-USASP2014056903

PATIENT
  Age: 60 Year
  Sex: Male

DRUGS (1)
  1. NEUPOGEN [Suspect]
     Active Substance: FILGRASTIM
     Indication: PRODUCT USED FOR UNKNOWN INDICATION
     Dosage: 4 X 480 MCG DOSES (1920 MCG)
     Route: 065
     Dates: start: 201407

REACTIONS (4)
  - Chest discomfort [Unknown]
  - Headache [Unknown]
  - Incorrect dose administered [Unknown]
  - Bone pain [Unknown]
